FAERS Safety Report 4741763-5 (Version None)
Quarter: 2005Q3

REPORT INFORMATION
  Report Type: 
  Country: None (occurrence: None)
  Receive Date: 20050808
  Receipt Date: 20050728
  Transmission Date: 20060218
  Serious: Yes (Disabling)
  Sender: FDA-Public Use
  Company Number: 2005108209

PATIENT
  Age: 22 Year
  Sex: Male

DRUGS (1)
  1. FELDENE [Suspect]
     Indication: ILL-DEFINED DISORDER
     Dates: start: 20020701

REACTIONS (7)
  - ANXIETY [None]
  - EPISTAXIS [None]
  - FATIGUE [None]
  - FEELING ABNORMAL [None]
  - GASTROINTESTINAL CANDIDIASIS [None]
  - INFLUENZA LIKE ILLNESS [None]
  - MUSCLE TWITCHING [None]
